FAERS Safety Report 12471719 (Version 1)
Quarter: 2016Q2

REPORT INFORMATION
  Report Type: Spontaneous
  Country: US (occurrence: US)
  Receive Date: 20160616
  Receipt Date: 20160616
  Transmission Date: 20160815
  Serious: Yes (Other)
  Sender: FDA-Public Use
  Company Number: US-PFIZER INC-2016298262

PATIENT
  Sex: Male

DRUGS (4)
  1. REMICADE [Suspect]
     Active Substance: INFLIXIMAB
     Dosage: UNK
  2. VIOXX [Suspect]
     Active Substance: ROFECOXIB
     Dosage: UNK
  3. METHOTREXATE SODIUM. [Suspect]
     Active Substance: METHOTREXATE SODIUM
     Dosage: UNK
  4. HUMIRA [Suspect]
     Active Substance: ADALIMUMAB
     Dosage: UNK

REACTIONS (3)
  - Tooth loss [Unknown]
  - Condition aggravated [Unknown]
  - Cardiac disorder [Unknown]
